FAERS Safety Report 20200979 (Version 1)
Quarter: 2021Q4

REPORT INFORMATION
  Report Type: Report from Study
  Country: FR (occurrence: FR)
  Receive Date: 20211217
  Receipt Date: 20211217
  Transmission Date: 20220303
  Serious: Yes (Death)
  Sender: FDA-Public Use
  Company Number: FR-BioHaven Pharmaceuticals-2021BHV000131

PATIENT
  Age: 72 Year
  Sex: Male
  Weight: 78 kg

DRUGS (8)
  1. VERDIPERSTAT [Suspect]
     Active Substance: VERDIPERSTAT
     Indication: Multiple system atrophy
     Route: 048
     Dates: start: 20210506, end: 20210512
  2. VERDIPERSTAT [Suspect]
     Active Substance: VERDIPERSTAT
     Route: 048
     Dates: start: 20210513, end: 20210519
  3. VERDIPERSTAT [Suspect]
     Active Substance: VERDIPERSTAT
     Route: 048
     Dates: start: 20210520, end: 20210801
  4. AMANTADINE HYDROCHLORIDE [Concomitant]
     Active Substance: AMANTADINE HYDROCHLORIDE
     Indication: Product used for unknown indication
     Dates: start: 20180925
  5. MIDODRINE HYDROCHLORIDE [Concomitant]
     Active Substance: MIDODRINE HYDROCHLORIDE
     Indication: Product used for unknown indication
     Dosage: 2.5
     Dates: start: 201601
  6. VENLAFAXINE [Concomitant]
     Active Substance: VENLAFAXINE HYDROCHLORIDE
     Indication: Product used for unknown indication
     Dates: start: 201101
  7. POTASSIUM BITARTRATE\SODIUM BICARBONATE [Concomitant]
     Active Substance: POTASSIUM BITARTRATE\SODIUM BICARBONATE
     Indication: Product used for unknown indication
     Dates: start: 202001
  8. FLUDDROCORTISONE [Concomitant]
     Indication: Product used for unknown indication
     Dates: start: 20201119

REACTIONS (1)
  - Myocardial infarction [Fatal]

NARRATIVE: CASE EVENT DATE: 20210801
